FAERS Safety Report 6503026-7 (Version None)
Quarter: 2009Q4

REPORT INFORMATION
  Report Type: 
  Country: None (occurrence: None)
  Receive Date: 20091217
  Receipt Date: 20091204
  Transmission Date: 20100525
  Serious: Yes (Hospitalization)
  Sender: FDA-Public Use
  Company Number: DE-SANOFI-AVENTIS-2009SA006813

PATIENT
  Age: 79 Year
  Sex: Female

DRUGS (11)
  1. FUROSEMID [Suspect]
     Indication: DEMENTIA ALZHEIMER'S TYPE
     Route: 048
     Dates: start: 20071112
  2. DOMINAL ^DRESDEN^ [Suspect]
     Indication: DEMENTIA ALZHEIMER'S TYPE
     Route: 048
     Dates: start: 20071107
  3. LISIHEXAL [Suspect]
     Indication: DEMENTIA ALZHEIMER'S TYPE
     Route: 048
  4. SEROQUEL [Suspect]
     Indication: DEMENTIA ALZHEIMER'S TYPE
     Route: 048
     Dates: start: 20071120, end: 20071120
  5. SEROQUEL [Suspect]
     Route: 048
     Dates: start: 20071121, end: 20071121
  6. SEROQUEL [Suspect]
     Route: 048
     Dates: start: 20071122, end: 20071123
  7. SEROQUEL [Suspect]
     Route: 048
     Dates: start: 20071124, end: 20071124
  8. SEROQUEL [Suspect]
     Route: 048
     Dates: start: 20071125, end: 20071126
  9. SEROQUEL [Suspect]
     Route: 048
     Dates: start: 20071127, end: 20071127
  10. SEROQUEL [Suspect]
     Route: 048
     Dates: start: 20071128, end: 20071129
  11. SEROQUEL [Suspect]
     Route: 048
     Dates: start: 20071130

REACTIONS (3)
  - CIRCULATORY COLLAPSE [None]
  - FALL [None]
  - HYPOTENSION [None]
